FAERS Safety Report 7329767-X (Version None)
Quarter: 2011Q1

REPORT INFORMATION
  Report Type: 
  Country: None (occurrence: None)
  Receive Date: 20110303
  Receipt Date: 20110221
  Transmission Date: 20110831
  Serious: Yes (Hospitalization)
  Sender: FDA-Public Use
  Company Number: US-CELGENEUS-163-21880-11022673

PATIENT
  Sex: Male
  Weight: 79.4 kg

DRUGS (3)
  1. REVLIMID [Suspect]
     Indication: MULTIPLE MYELOMA
     Dosage: 20 MILLIGRAM
     Route: 048
     Dates: start: 20100315
  2. REVLIMID [Suspect]
     Dosage: 15 MILLIGRAM
     Route: 048
     Dates: start: 20101201
  3. REVLIMID [Suspect]
     Dosage: 15MG-20MG
     Route: 048
     Dates: start: 20100701

REACTIONS (4)
  - FATIGUE [None]
  - DIARRHOEA [None]
  - CARDIAC DISORDER [None]
  - HOT FLUSH [None]
